FAERS Safety Report 11146420 (Version 3)
Quarter: 2015Q2

REPORT INFORMATION
  Report Type: Spontaneous
  Country: DE (occurrence: DE)
  Receive Date: 20150526
  Receipt Date: 20150604
  Transmission Date: 20150821
  Serious: Yes (Hospitalization)
  Sender: FDA-Public Use
  Company Number: DE-20150092

PATIENT
  Age: 23 Year
  Sex: Male

DRUGS (3)
  1. MANNITOL. [Concomitant]
     Active Substance: MANNITOL
     Route: 048
     Dates: start: 20150512, end: 20150512
  2. BUSCOPAN (HYOSCINE BUTYLBROMIDE) [Concomitant]
     Dates: start: 20150512, end: 20150512
  3. DOTAREM [Suspect]
     Active Substance: GADOTERATE MEGLUMINE
     Indication: NUCLEAR MAGNETIC RESONANCE IMAGING
     Route: 041
     Dates: start: 20150512, end: 20150514

REACTIONS (5)
  - Erythema [Recovered/Resolved]
  - Eyelid oedema [Recovered/Resolved]
  - Urticaria [Recovered/Resolved]
  - Dyspnoea [Recovered/Resolved]
  - Cold sweat [Recovered/Resolved]

NARRATIVE: CASE EVENT DATE: 20150512
